FAERS Safety Report 5096935-X (Version None)
Quarter: 2006Q3

REPORT INFORMATION
  Report Type: 
  Country: None (occurrence: None)
  Receive Date: 20060906
  Receipt Date: 20060823
  Transmission Date: 20061208
  Serious: Yes (Hospitalization)
  Sender: FDA-Public Use
  Company Number: DE-BAYER-200611096BVD

PATIENT
  Age: 26 Year
  Sex: Female
  Weight: 80 kg

DRUGS (3)
  1. ASPIRIN [Suspect]
     Indication: HEADACHE
     Route: 048
     Dates: start: 20000101, end: 20051229
  2. MEDITONSIN [Suspect]
     Indication: INFLUENZA
     Route: 048
     Dates: start: 20040601, end: 20051229
  3. BELARA [Concomitant]
     Route: 048
     Dates: start: 19980101, end: 20060106

REACTIONS (3)
  - INFECTION [None]
  - INFLUENZA [None]
  - THROMBOCYTOPENIA [None]
